FAERS Safety Report 18710493 (Version 1)
Quarter: 2021Q1

REPORT INFORMATION
  Report Type: Spontaneous
  Country: US (occurrence: US)
  Receive Date: 20210107
  Receipt Date: 20210107
  Transmission Date: 20210419
  Serious: No
  Sender: FDA-Public Use
  Company Number: US-SA-2021SA002887

PATIENT

DRUGS (17)
  1. ALENDRONAT [Concomitant]
     Active Substance: ALENDRONATE SODIUM
  2. LEVOTHYROXINE. [Concomitant]
     Active Substance: LEVOTHYROXINE
     Route: 065
  3. AMANTADINE. [Concomitant]
     Active Substance: AMANTADINE HYDROCHLORIDE
     Route: 065
  4. OXCARBAZEPINE. [Concomitant]
     Active Substance: OXCARBAZEPINE
     Route: 065
  5. BABY ASPIRIN [Concomitant]
     Active Substance: ASPIRIN
  6. VITAMIN D3 [Concomitant]
     Active Substance: CHOLECALCIFEROL
     Route: 065
  7. BACLOFEN. [Concomitant]
     Active Substance: BACLOFEN
  8. DULOXETINE. [Concomitant]
     Active Substance: DULOXETINE
  9. ATORVASTATIN [Concomitant]
     Active Substance: ATORVASTATIN
  10. MODAFINIL. [Concomitant]
     Active Substance: MODAFINIL
  11. PREDNISONE. [Concomitant]
     Active Substance: PREDNISONE
  12. TECFIDERA [Concomitant]
     Active Substance: DIMETHYL FUMARATE
  13. BENADRYL [Concomitant]
     Active Substance: DIPHENHYDRAMINE HYDROCHLORIDE
  14. CORTISONE [Concomitant]
     Active Substance: CORTISONE
  15. COLACE [Concomitant]
     Active Substance: DOCUSATE SODIUM
  16. ALLEGRA [Suspect]
     Active Substance: FEXOFENADINE HYDROCHLORIDE
     Indication: PRODUCT USED FOR UNKNOWN INDICATION
     Route: 065
  17. GABAPENTIN. [Concomitant]
     Active Substance: GABAPENTIN

REACTIONS (1)
  - Drug ineffective [Unknown]
